FAERS Safety Report 22625184 (Version 1)
Quarter: 2023Q2

REPORT INFORMATION
  Report Type: Spontaneous
  Country: US (occurrence: None)
  Receive Date: 20230616
  Receipt Date: 20230616
  Transmission Date: 20230722
  Serious: No
  Sender: FDA-Public Use
  Company Number: None

PATIENT
  Age: 67 Year
  Sex: Female
  Weight: 78.47 kg

DRUGS (19)
  1. TEMOZOLOMIDE [Suspect]
     Active Substance: TEMOZOLOMIDE
     Indication: Brain neoplasm malignant
     Dosage: 280MG DAILY ORAL
     Route: 048
     Dates: start: 202304, end: 20230616
  2. ACETAMINOPHEN [Concomitant]
     Active Substance: ACETAMINOPHEN
  3. BISACODYL [Concomitant]
     Active Substance: BISACODYL
  4. COLACE [Concomitant]
     Active Substance: DOCUSATE SODIUM
  5. DEXAMETHASONE [Concomitant]
     Active Substance: DEXAMETHASONE
  6. ELIQUIS [Concomitant]
     Active Substance: APIXABAN
  7. HUMALOG [Concomitant]
     Active Substance: INSULIN LISPRO
  8. KEPPRA [Concomitant]
     Active Substance: LEVETIRACETAM
  9. LEVOTHYROXINE [Concomitant]
     Active Substance: LEVOTHYROXINE
  10. LOVENOX [Concomitant]
     Active Substance: ENOXAPARIN SODIUM
  11. MAGNESIUM [Concomitant]
     Active Substance: MAGNESIUM
  12. HYDROXIDE [Concomitant]
  13. MELATONIN [Concomitant]
     Active Substance: MELATONIN
  14. METHOCARBAMOL [Concomitant]
     Active Substance: METHOCARBAMOL
  15. OMEPRAZOLE [Concomitant]
     Active Substance: OMEPRAZOLE
  16. PAROXETINE [Concomitant]
     Active Substance: PAROXETINE
  17. SENNA [Concomitant]
     Active Substance: SENNA LEAF\SENNOSIDES\SENNOSIDES A AND B
  18. TRAZODONE [Concomitant]
     Active Substance: TRAZODONE HYDROCHLORIDE
  19. ZOFRAN [Concomitant]
     Active Substance: ONDANSETRON HYDROCHLORIDE

REACTIONS (1)
  - Hospice care [None]
